FAERS Safety Report 15606054 (Version 1)
Quarter: 2018Q4

REPORT INFORMATION
  Report Type: Spontaneous
  Country: US (occurrence: US)
  Receive Date: 20181106
  Receipt Date: 20181106
  Transmission Date: 20190205
  Serious: Yes (Hospitalization)
  Sender: FDA-Public Use
  Company Number: None

PATIENT
  Age: 9 Year
  Sex: Male

DRUGS (6)
  1. FLUTICASONE (FLUTICASONE PROPIONATE) [Concomitant]
     Active Substance: FLUTICASONE PROPIONATE
  2. OMNITROPE [Suspect]
     Active Substance: SOMATROPIN
     Indication: CONGENITAL ANOMALY
     Route: 058
     Dates: start: 20171017
  3. DEXMETHYLPHENIDATE  ER [Concomitant]
     Active Substance: DEXMETHYLPHENIDATE HYDROCHLORIDE
  4. FLUOCORTISOL [Concomitant]
  5. ALBUTEROL. [Concomitant]
     Active Substance: ALBUTEROL
  6. TAMOSULIN [Concomitant]

REACTIONS (1)
  - Tonsillectomy [None]

NARRATIVE: CASE EVENT DATE: 201805
